FAERS Safety Report 4851556-6 (Version None)
Quarter: 2005Q4

REPORT INFORMATION
  Report Type: 
  Country: None (occurrence: None)
  Receive Date: 20051212
  Receipt Date: 20051202
  Transmission Date: 20060501
  Serious: Yes (Hospitalization)
  Sender: FDA-Public Use
  Company Number: US-ROCHE-427480

PATIENT
  Age: 48 Year
  Sex: Male

DRUGS (3)
  1. PEGASYS [Suspect]
     Dosage: ROUTE WAS REPORTED AS INJECTABLE
     Route: 050
     Dates: start: 20050131
  2. COPEGUS [Suspect]
     Route: 048
     Dates: start: 20050131
  3. ZOLOFT [Concomitant]
     Indication: BIPOLAR DISORDER
     Route: 048

REACTIONS (3)
  - CARDIAC FAILURE CONGESTIVE [None]
  - FULL BLOOD COUNT DECREASED [None]
  - PNEUMONIA [None]
